FAERS Safety Report 24091985 (Version 1)
Quarter: 2024Q3

REPORT INFORMATION
  Report Type: Spontaneous
  Country: US (occurrence: None)
  Receive Date: 20240715
  Receipt Date: 20240715
  Transmission Date: 20241016
  Serious: Yes (Other)
  Sender: Public
  Company Number: None

PATIENT
  Sex: Female

DRUGS (1)
  1. BOTOX [Suspect]
     Active Substance: ONABOTULINUMTOXINA
     Indication: Migraine
     Dosage: OTHER FREQUENCY : EVERY 12 WEEKS;?
     Route: 065
     Dates: start: 20240509

REACTIONS (3)
  - Cholecystectomy [None]
  - Lithiasis [None]
  - Gastrointestinal disorder [None]
